APPROVED DRUG PRODUCT: SODIUM NITROPRUSSIDE
Active Ingredient: SODIUM NITROPRUSSIDE
Strength: 50MG/VIAL **Federal Register determination that product was not discontinued or withdrawn for safety or effectiveness reasons**
Dosage Form/Route: INJECTABLE;INJECTION
Application: N018581 | Product #001
Applicant: BAXTER HEALTHCARE CORP ANESTHESIA AND CRITICAL CARE
Approved: Jul 28, 1982 | RLD: Yes | RS: No | Type: DISCN